FAERS Safety Report 20516731 (Version 1)
Quarter: 2022Q1

REPORT INFORMATION
  Report Type: Spontaneous
  Country: FR (occurrence: FR)
  Receive Date: 20220225
  Receipt Date: 20220225
  Transmission Date: 20220424
  Serious: Yes (Hospitalization)
  Sender: FDA-Public Use
  Company Number: None

PATIENT
  Age: 83 Year
  Sex: Male
  Weight: 43.6 kg

DRUGS (2)
  1. OLANZAPINE [Suspect]
     Active Substance: OLANZAPINE
     Indication: Schizophrenia
     Dosage: UNK (NR)
     Route: 048
     Dates: start: 202107
  2. HALDOL [Suspect]
     Active Substance: HALOPERIDOL
     Indication: Schizophrenia
     Dosage: UNK (NR)
     Route: 048
     Dates: start: 1984

REACTIONS (4)
  - Fall [Recovered/Resolved with Sequelae]
  - Condition aggravated [Not Recovered/Not Resolved]
  - Rhabdomyolysis [Recovered/Resolved with Sequelae]
  - Extrapyramidal disorder [Not Recovered/Not Resolved]

NARRATIVE: CASE EVENT DATE: 20210101
